FAERS Safety Report 4495760-8 (Version None)
Quarter: 2004Q4

REPORT INFORMATION
  Report Type: 
  Country: None (occurrence: None)
  Receive Date: 20041104
  Receipt Date: 20041104
  Transmission Date: 20050328
  Serious: Yes (Life-Threatening, Hospitalization)
  Sender: FDA-Public Use
  Company Number: 200414183BCC

PATIENT
  Age: 88 Year
  Sex: Male
  Weight: 82.1011 kg

DRUGS (6)
  1. ALEVE [Suspect]
     Indication: ARTHRALGIA
     Dosage: 440 MG, OM, ORAL
     Route: 048
  2. ALEVE [Suspect]
     Indication: ARTHRITIS
     Dosage: 440 MG, OM, ORAL
     Route: 048
  3. TYLENOL [Concomitant]
  4. COUMADIN [Concomitant]
  5. CELEBREX [Concomitant]
  6. ACETAMINOPHEN W/ CODEINE [Concomitant]

REACTIONS (2)
  - DIVERTICULUM [None]
  - GASTROINTESTINAL HAEMORRHAGE [None]
